FAERS Safety Report 13726871 (Version 1)
Quarter: 2017Q3

REPORT INFORMATION
  Report Type: Spontaneous
  Country: US (occurrence: US)
  Receive Date: 20170707
  Receipt Date: 20170707
  Transmission Date: 20171127
  Serious: Yes (Other)
  Sender: FDA-Public Use
  Company Number: US-INCYTE CORPORATION-2017IN005212

PATIENT

DRUGS (1)
  1. JAKAFI [Suspect]
     Active Substance: RUXOLITINIB
     Indication: MYELOFIBROSIS
     Dosage: 15-25 MG, BID
     Route: 065

REACTIONS (5)
  - Second primary malignancy [Unknown]
  - Squamous cell carcinoma of skin [Unknown]
  - Basal cell carcinoma [Unknown]
  - Metastases to nervous system [Unknown]
  - Metastases to neck [Unknown]
